FAERS Safety Report 6506623-8 (Version None)
Quarter: 2009Q4

REPORT INFORMATION
  Report Type: 
  Country: None (occurrence: None)
  Receive Date: 20091221
  Receipt Date: 20091211
  Transmission Date: 20100525
  Serious: Yes (Other)
  Sender: FDA-Public Use
  Company Number: US-ROCHE-612109

PATIENT
  Sex: Female
  Weight: 77.1 kg

DRUGS (1)
  1. CAPECITABINE [Suspect]
     Indication: BILIARY CANCER METASTATIC
     Dosage: DOSE:1500 MG IN THE MORNING AND 1000 MG IN EVENING ( 05 TABLETS DAILY)
     Route: 048
     Dates: start: 20080110, end: 20091030

REACTIONS (4)
  - DEEP VEIN THROMBOSIS [None]
  - HEADACHE [None]
  - MALIGNANT NEOPLASM PROGRESSION [None]
  - PULMONARY EMBOLISM [None]
